APPROVED DRUG PRODUCT: OPHTHOCORT
Active Ingredient: CHLORAMPHENICOL; HYDROCORTISONE ACETATE; POLYMYXIN B SULFATE
Strength: 10MG/GM;5MG/GM;10,000 UNITS/GM
Dosage Form/Route: OINTMENT;OPHTHALMIC
Application: N050201 | Product #002
Applicant: PARKEDALE PHARMACEUTICALS INC
Approved: Approved Prior to Jan 1, 1982 | RLD: No | RS: No | Type: DISCN